FAERS Safety Report 6494274-3 (Version None)
Quarter: 2009Q4

REPORT INFORMATION
  Report Type: 
  Country: None (occurrence: None)
  Receive Date: 20091214
  Receipt Date: 20090407
  Transmission Date: 20100525
  Serious: No
  Sender: FDA-Public Use
  Company Number: US-BRISTOL-MYERS SQUIBB COMPANY-14490288

PATIENT
  Age: 55 Year
  Sex: Female
  Weight: 77 kg

DRUGS (7)
  1. ABILIFY [Suspect]
     Indication: DEPRESSION
     Dosage: START WITH 1/2TABS FIRST DAY, 1 TABLET 2ND DAY 1 DOSAGE FORM = 2DOSES IN 48HOURS
     Route: 048
     Dates: start: 20090126
  2. ABILIFY [Suspect]
     Indication: MIGRAINE
     Dosage: START WITH 1/2TABS FIRST DAY, 1 TABLET 2ND DAY 1 DOSAGE FORM = 2DOSES IN 48HOURS
     Route: 048
     Dates: start: 20090126
  3. CELEXA [Concomitant]
  4. METHERGINE [Concomitant]
  5. TIZANIDINE HCL [Concomitant]
  6. DILAUDID [Concomitant]
  7. CLONAZEPAM [Concomitant]

REACTIONS (1)
  - MIGRAINE [None]
